FAERS Safety Report 11177347 (Version 2)
Quarter: 2015Q3

REPORT INFORMATION
  Report Type: Spontaneous
  Country: US (occurrence: US)
  Receive Date: 20150610
  Receipt Date: 20150803
  Transmission Date: 20151125
  Serious: Yes (Hospitalization, Other)
  Sender: FDA-Public Use
  Company Number: US-PFIZER INC-2015189485

PATIENT
  Age: 77 Year
  Sex: Female
  Weight: 48 kg

DRUGS (11)
  1. ANBESOL REGULAR STRENGTH GEL [Suspect]
     Active Substance: BENZOCAINE
     Indication: PAIN
  2. BENTYL [Concomitant]
     Active Substance: DICYCLOMINE HYDROCHLORIDE
     Dosage: UNK
  3. NITROSTAT [Concomitant]
     Active Substance: NITROGLYCERIN
     Dosage: UNK, AS NEEDED
  4. POTASSIUM CITRATE. [Concomitant]
     Active Substance: POTASSIUM CITRATE
     Indication: CARDIAC DISORDER
     Dosage: 4 TABLET 1080 MG A DAY
  5. PREVACID [Concomitant]
     Active Substance: LANSOPRAZOLE
     Indication: DYSPEPSIA
     Dosage: UNK
  6. PRINIVIL [Concomitant]
     Active Substance: LISINOPRIL
     Indication: BLOOD PRESSURE ABNORMAL
     Dosage: 5 MG, UNK
  7. TOPROL XL [Concomitant]
     Active Substance: METOPROLOL SUCCINATE
     Indication: BLOOD PRESSURE ABNORMAL
     Dosage: UNK
  8. ANBESOL REGULAR STRENGTH GEL [Suspect]
     Active Substance: BENZOCAINE
     Indication: TOOTHACHE
     Dosage: UNK , SINGLE
     Route: 048
     Dates: start: 20150525, end: 20150525
  9. ZOLOFT [Concomitant]
     Active Substance: SERTRALINE HYDROCHLORIDE
     Dosage: UNK
  10. LIPITOR [Concomitant]
     Active Substance: ATORVASTATIN CALCIUM
     Dosage: 80 MG, DAILY
  11. BRILINTA [Concomitant]
     Active Substance: TICAGRELOR
     Indication: STENT PLACEMENT
     Dosage: ONE TABLET EVERY 12 HOURS

REACTIONS (5)
  - Burning sensation [Recovered/Resolved]
  - Arterial occlusive disease [Recovered/Resolved]
  - Condition aggravated [Recovered/Resolved]
  - Myocardial infarction [Recovered/Resolved]
  - Pain [Recovered/Resolved]

NARRATIVE: CASE EVENT DATE: 20150525
